FAERS Safety Report 11809821 (Version 1)
Quarter: 2015Q4

REPORT INFORMATION
  Report Type: Spontaneous
  Country: US (occurrence: None)
  Receive Date: 20151207
  Receipt Date: 20151207
  Transmission Date: 20160305
  Serious: No
  Sender: FDA-Public Use
  Company Number: None

PATIENT
  Age: 23 Year
  Sex: Female
  Weight: 97.52 kg

DRUGS (4)
  1. LUTERA [Suspect]
     Active Substance: ETHINYL ESTRADIOL\LEVONORGESTREL
     Indication: CONTRACEPTION
     Dosage: TAKEN BY MOUTH; 28 ACTIVE PILLS, 7 NON ACTIVE
     Dates: start: 20151102, end: 20151206
  2. IBUPROFEN. [Concomitant]
     Active Substance: IBUPROFEN
  3. LUTERA [Concomitant]
     Active Substance: ETHINYL ESTRADIOL\LEVONORGESTREL
  4. MIDOL [Concomitant]
     Active Substance: IBUPROFEN

REACTIONS (2)
  - Hypomenorrhoea [None]
  - Menstrual disorder [None]

NARRATIVE: CASE EVENT DATE: 20151127
